FAERS Safety Report 20773861 (Version 1)
Quarter: 2022Q2

REPORT INFORMATION
  Report Type: Report from Study
  Country: CA (occurrence: CA)
  Receive Date: 20220502
  Receipt Date: 20220502
  Transmission Date: 20220721
  Serious: Yes (Other)
  Sender: FDA-Public Use
  Company Number: CA-BAYER-2022A058624

PATIENT
  Age: 52 Year
  Sex: Male

DRUGS (1)
  1. EYLEA [Suspect]
     Active Substance: AFLIBERCEPT
     Indication: Diabetic retinal oedema
     Dosage: UNK
     Route: 031
     Dates: start: 20220412

REACTIONS (3)
  - Retinal oedema [Unknown]
  - Retinal haemorrhage [Unknown]
  - Eye pain [Unknown]

NARRATIVE: CASE EVENT DATE: 20220412
